FAERS Safety Report 12228621 (Version 1)
Quarter: 2016Q1

REPORT INFORMATION
  Report Type: Spontaneous
  Country: US (occurrence: None)
  Receive Date: 20160330
  Receipt Date: 20160330
  Transmission Date: 20160526
  Serious: Yes (Life-Threatening, Hospitalization, Other)
  Sender: FDA-Public Use
  Company Number: None

PATIENT
  Age: 67 Year
  Sex: Female
  Weight: 77 kg

DRUGS (3)
  1. GLUCOPHAGE [Suspect]
     Active Substance: METFORMIN HYDROCHLORIDE
     Indication: DIABETES MELLITUS
     Route: 048
  2. COZAAR [Suspect]
     Active Substance: LOSARTAN POTASSIUM
     Indication: HYPERTENSION
     Route: 048
  3. COZAAR [Suspect]
     Active Substance: LOSARTAN POTASSIUM
     Indication: DIABETES MELLITUS
     Route: 048

REACTIONS (11)
  - Blood sodium decreased [None]
  - Abdominal distension [None]
  - Blood bicarbonate decreased [None]
  - Anion gap increased [None]
  - Blood magnesium decreased [None]
  - Blood creatinine increased [None]
  - Blood phosphorus increased [None]
  - Blood potassium increased [None]
  - Hypoglycaemia [None]
  - Blood urea increased [None]
  - Anuria [None]

NARRATIVE: CASE EVENT DATE: 20160323
